FAERS Safety Report 8555361-9 (Version None)
Quarter: 2012Q3

REPORT INFORMATION
  Report Type: 
  Country: None (occurrence: None)
  Receive Date: 20120731
  Receipt Date: 20111006
  Transmission Date: 20120928
  Serious: No
  Sender: FDA-Public Use
  Company Number: US-ASTRAZENECA-2011SE43201

PATIENT
  Age: 72 Year
  Sex: Female
  Weight: 90.7 kg

DRUGS (5)
  1. PROVOXATIN [Concomitant]
  2. XANAX [Concomitant]
  3. SEROQUEL [Suspect]
     Indication: SLEEP DISORDER
     Route: 048
  4. LEVOTHYROXINE SODIUM [Concomitant]
     Indication: THYROID DISORDER
  5. IBUPROFEN [Concomitant]
     Indication: PAIN

REACTIONS (7)
  - INSOMNIA [None]
  - DRUG DOSE OMISSION [None]
  - HEADACHE [None]
  - SOMNOLENCE [None]
  - NAUSEA [None]
  - OFF LABEL USE [None]
  - INCORRECT DOSE ADMINISTERED [None]
